FAERS Safety Report 23811236 (Version 1)
Quarter: 2024Q2

REPORT INFORMATION
  Report Type: Spontaneous
  Country: JP (occurrence: JP)
  Receive Date: 20240502
  Receipt Date: 20240502
  Transmission Date: 20240716
  Serious: Yes (Hospitalization, Other)
  Sender: FDA-Public Use
  Company Number: JP-BRISTOL-MYERS SQUIBB COMPANY-2024-066946

PATIENT
  Age: 77 Year
  Sex: Male

DRUGS (2)
  1. APIXABAN [Suspect]
     Active Substance: APIXABAN
     Indication: Embolism venous
  2. APIXABAN [Suspect]
     Active Substance: APIXABAN

REACTIONS (3)
  - Shock haemorrhagic [Unknown]
  - Haemothorax [Recovering/Resolving]
  - Condition aggravated [Recovering/Resolving]
